FAERS Safety Report 4697672-3 (Version None)
Quarter: 2005Q2

REPORT INFORMATION
  Report Type: 
  Country: None (occurrence: None)
  Receive Date: 20050622
  Receipt Date: 20050602
  Transmission Date: 20051028
  Serious: Yes (Hospitalization, Other)
  Sender: FDA-Public Use
  Company Number: USA050699596

PATIENT
  Age: 42 Year
  Sex: Female
  Weight: 68 kg

DRUGS (1)
  1. HUMALOG [Suspect]
     Indication: DIABETES MELLITUS

REACTIONS (4)
  - BLOOD GLUCOSE INCREASED [None]
  - KIDNEY INFECTION [None]
  - LYMPHOMA [None]
  - PANCREAS TRANSPLANT [None]
